FAERS Safety Report 15752386 (Version 1)
Quarter: 2018Q4

REPORT INFORMATION
  Report Type: Spontaneous
  Country: GR (occurrence: GR)
  Receive Date: 20181221
  Receipt Date: 20181221
  Transmission Date: 20190205
  Serious: Yes (Disabling)
  Sender: FDA-Public Use
  Company Number: GR-ELI_LILLY_AND_COMPANY-GR201812008026

PATIENT
  Age: 80 Year
  Sex: Male

DRUGS (6)
  1. ZYPREXA [Suspect]
     Active Substance: OLANZAPINE
     Indication: DELUSION
     Dosage: 5 MG, DAILY
     Route: 048
     Dates: start: 2015
  2. MADOPAR [Concomitant]
     Active Substance: BENSERAZIDE HYDROCHLORIDE\LEVODOPA
  3. ZYPREXA [Suspect]
     Active Substance: OLANZAPINE
     Dosage: 10 MG, DAILY
     Route: 048
  4. STALEVO [CARBIDOPA;ENTACAPONE;LEVODOPA] [Concomitant]
     Indication: PARKINSON^S DISEASE
  5. SALOSPIR [Concomitant]
     Active Substance: ASPIRIN
     Indication: ANTICOAGULANT THERAPY
  6. MIRAPEXIN [Concomitant]
     Active Substance: PRAMIPEXOLE
     Indication: PARKINSON^S DISEASE

REACTIONS (4)
  - Incorrect dose administered [Recovered/Resolved]
  - Urinary incontinence [Recovered/Resolved]
  - Gait inability [Recovered/Resolved]
  - Feeding disorder [Recovered/Resolved]
